FAERS Safety Report 5936559-2 (Version None)
Quarter: 2008Q4

REPORT INFORMATION
  Report Type: 
  Country: None (occurrence: None)
  Receive Date: 20081020
  Receipt Date: 20080725
  Transmission Date: 20090506
  Serious: Yes (Other)
  Sender: FDA-Public Use
  Company Number: US-WYE-H05281608

PATIENT
  Age: 47 Year
  Sex: Male
  Weight: 83.99 kg

DRUGS (1)
  1. ADVIL PM [Suspect]
     Indication: ARTHRALGIA
     Dosage: 2 CAPLETS X 1, ORAL
     Route: 048
     Dates: start: 20080701, end: 20080701

REACTIONS (2)
  - ANXIETY [None]
  - RESTLESSNESS [None]
